FAERS Safety Report 10349987 (Version 1)
Quarter: 2014Q3

REPORT INFORMATION
  Report Type: Spontaneous
  Country: US (occurrence: US)
  Receive Date: 20140730
  Receipt Date: 20140730
  Transmission Date: 20150326
  Serious: No
  Sender: FDA-Public Use
  Company Number: US-GLAXOSMITHKLINE-A1047739A

PATIENT
  Sex: Female

DRUGS (2)
  1. NO CONCURRENT MEDICATION [Concomitant]
     Active Substance: UNSPECIFIED INGREDIENT
  2. SUMATRIPTAN [Suspect]
     Active Substance: SUMATRIPTAN
     Indication: MIGRAINE
     Dosage: 50MG UNKNOWN
     Route: 048

REACTIONS (5)
  - Panic reaction [Recovered/Resolved]
  - Dizziness [Recovered/Resolved]
  - Therapeutic response decreased [Unknown]
  - Nausea [Recovered/Resolved]
  - Chest discomfort [Recovered/Resolved]
